FAERS Safety Report 14163837 (Version 1)
Quarter: 2017Q4

REPORT INFORMATION
  Report Type: Spontaneous
  Country: US (occurrence: US)
  Receive Date: 20171106
  Receipt Date: 20171106
  Transmission Date: 20180321
  Serious: No
  Sender: FDA-Public Use
  Company Number: US-SHIRE-US201725122

PATIENT
  Sex: Male

DRUGS (1)
  1. GATTEX [Suspect]
     Active Substance: TEDUGLUTIDE\WATER
     Indication: SHORT-BOWEL SYNDROME
     Dosage: 0.354 ML, 1X/DAY:QD
     Route: 065

REACTIONS (3)
  - Ill-defined disorder [Unknown]
  - Weight gain poor [Unknown]
  - Inappropriate schedule of drug administration [Unknown]
